FAERS Safety Report 13286754 (Version 1)
Quarter: 2017Q1

REPORT INFORMATION
  Report Type: Spontaneous
  Country: FR (occurrence: FR)
  Receive Date: 20170302
  Receipt Date: 20170302
  Transmission Date: 20170428
  Serious: Yes (Hospitalization)
  Sender: FDA-Public Use
  Company Number: FR-PFIZER INC-2017072094

PATIENT
  Age: 68 Year
  Sex: Male

DRUGS (7)
  1. AERIUS [Suspect]
     Active Substance: DESLORATADINE
     Dosage: 5 MG/KG, 1X/DAY
     Route: 048
     Dates: end: 20170115
  2. TAHOR [Concomitant]
     Active Substance: ATORVASTATIN CALCIUM
     Dosage: 40 MG, QD
     Route: 048
     Dates: end: 20170115
  3. CEFOXITIN [Concomitant]
     Active Substance: CEFOXITIN SODIUM
     Indication: ENDOCARDITIS
     Dosage: 2 G, 3X/DAY
     Route: 042
     Dates: start: 20161216
  4. ANCOTIL [Concomitant]
     Active Substance: FLUCYTOSINE
     Indication: ENDOCARDITIS
     Dosage: 100 MG/KG, 1X/DAY
     Route: 042
     Dates: start: 20161216
  5. AMBISOME [Concomitant]
     Active Substance: AMPHOTERICIN B
     Indication: ENDOCARDITIS
     Dosage: 3 MG/KG, 1X/DAY
     Dates: start: 20161216
  6. GABAPENTIN. [Suspect]
     Active Substance: GABAPENTIN
     Dosage: 100 MG, 3X/DAY
     Route: 048
     Dates: end: 20170115
  7. EUPANTOL [Suspect]
     Active Substance: PANTOPRAZOLE SODIUM
     Dosage: 20 MG, 1X/DAY
     Route: 048
     Dates: end: 20170115

REACTIONS (1)
  - Neutropenia [Recovered/Resolved]

NARRATIVE: CASE EVENT DATE: 20170107
